FAERS Safety Report 5510802-6 (Version None)
Quarter: 2007Q4

REPORT INFORMATION
  Report Type: 
  Country: None (occurrence: None)
  Receive Date: 20071107
  Receipt Date: 20071029
  Transmission Date: 20080405
  Serious: Yes (Hospitalization)
  Sender: FDA-Public Use
  Company Number: 2007BI022955

PATIENT
  Age: 35 Year
  Sex: Female

DRUGS (1)
  1. AVONEX [Suspect]
     Indication: MULTIPLE SCLEROSIS
     Dosage: 30 UG QW IM
     Route: 030
     Dates: start: 20070713, end: 20070901

REACTIONS (4)
  - AMNESIA [None]
  - BRAIN NEOPLASM BENIGN [None]
  - HYPOAESTHESIA [None]
  - MEMORY IMPAIRMENT [None]
